FAERS Safety Report 23474003 (Version 1)
Quarter: 2024Q1

REPORT INFORMATION
  Report Type: Spontaneous
  Country: US (occurrence: US)
  Receive Date: 20240204
  Receipt Date: 20240204
  Transmission Date: 20240410
  Serious: No
  Sender: FDA-Public Use
  Company Number: US-GSK-US2024AMR012439

PATIENT
  Sex: Female

DRUGS (1)
  1. BENLYSTA [Suspect]
     Active Substance: BELIMUMAB
     Indication: Systemic lupus erythematosus
     Dosage: 200 MG, WE ( A WEEK ON SAME DAY OF EACH WEEK IN THE ABDOMEN OR THIGH ROTATING INJECTION SITES)
     Route: 058

REACTIONS (1)
  - Treatment noncompliance [Unknown]
